FAERS Safety Report 5910210-X (Version None)
Quarter: 2008Q4

REPORT INFORMATION
  Report Type: 
  Country: None (occurrence: None)
  Receive Date: 20081007
  Receipt Date: 20071012
  Transmission Date: 20090506
  Serious: No
  Sender: FDA-Public Use
  Company Number: US-ASTRAZENECA-2007UW23794

PATIENT
  Age: 54 Year
  Sex: Female
  Weight: 90.7 kg

DRUGS (7)
  1. ARIMIDEX [Suspect]
     Indication: BREAST CANCER
     Route: 048
  2. METFORMIN HCL [Concomitant]
     Indication: HYPERINSULINAEMIA
  3. EFFEXOR [Concomitant]
     Indication: HOT FLUSH
  4. FLONASE [Concomitant]
     Indication: MULTIPLE ALLERGIES
  5. TOPROL-XL [Concomitant]
  6. FUROSEMIDE [Concomitant]
  7. POTASSIUM CHLORIDE [Concomitant]

REACTIONS (5)
  - BURNING SENSATION [None]
  - HYPOAESTHESIA [None]
  - NEUROPATHY PERIPHERAL [None]
  - PARAESTHESIA [None]
  - SWELLING [None]
